FAERS Safety Report 4444180-0 (Version None)
Quarter: 2004Q3

REPORT INFORMATION
  Report Type: 
  Country: None (occurrence: None)
  Receive Date: 20040908
  Receipt Date: 20020207
  Transmission Date: 20050211
  Serious: Yes (Hospitalization)
  Sender: FDA-Public Use
  Company Number: US-MERCK-0202USA00854

PATIENT
  Age: 75 Year
  Sex: Female

DRUGS (4)
  1. ASPIRIN [Concomitant]
     Route: 065
  2. VIOXX [Suspect]
     Indication: LIGAMENT INJURY
     Route: 048
     Dates: start: 20000601, end: 20010201
  3. VIOXX [Suspect]
     Indication: MONARTHRITIS
     Route: 048
     Dates: start: 20000601, end: 20010201
  4. SENOKOT [Concomitant]
     Indication: CONSTIPATION
     Route: 065

REACTIONS (4)
  - COSTOCHONDRITIS [None]
  - FEELING ABNORMAL [None]
  - GASTRIC DISORDER [None]
  - HYPERTENSION [None]
